FAERS Safety Report 11569223 (Version 1)
Quarter: 2015Q3

REPORT INFORMATION
  Report Type: Spontaneous
  Country: US (occurrence: US)
  Receive Date: 20150929
  Receipt Date: 20150929
  Transmission Date: 20151125
  Serious: No
  Sender: FDA-Public Use
  Company Number: US-JNJFOC-20150907357

PATIENT
  Age: 75 Year
  Sex: Female
  Weight: 45.81 kg

DRUGS (3)
  1. PEPCID AC ORIGINAL STRENGTH [Suspect]
     Active Substance: FAMOTIDINE
     Route: 048
  2. ALL OTHER THERAPEUTIC PRODUCTS [Concomitant]
     Active Substance: UNSPECIFIED INGREDIENT
     Indication: PRODUCT USED FOR UNKNOWN INDICATION
     Route: 065
  3. PEPCID AC ORIGINAL STRENGTH [Suspect]
     Active Substance: FAMOTIDINE
     Indication: DYSPEPSIA
     Dosage: SHE THINKS SHE TOOK 1 TABLET ON SUNDAY AND 1 ON MONDAY BUT WAS NOT SURE
     Route: 048
     Dates: start: 20150906, end: 20150907

REACTIONS (1)
  - Drug ineffective [Unknown]
